FAERS Safety Report 12394179 (Version 3)
Quarter: 2016Q3

REPORT INFORMATION
  Report Type: Spontaneous
  Country: US (occurrence: US)
  Receive Date: 20160523
  Receipt Date: 20160727
  Transmission Date: 20161109
  Serious: Yes (Hospitalization)
  Sender: FDA-Public Use
  Company Number: US-BAYER-2016-095415

PATIENT
  Age: 30 Year
  Sex: Female
  Weight: 68.27 kg

DRUGS (2)
  1. TRI-SPRINTEC [Concomitant]
     Active Substance: ETHINYL ESTRADIOL\NORGESTIMATE
  2. MIRENA [Suspect]
     Active Substance: LEVONORGESTREL
     Indication: CONTRACEPTION
     Dosage: 20 MCG/24HR, CONT
     Route: 015
     Dates: start: 20091006, end: 20141125

REACTIONS (5)
  - Uterine perforation [None]
  - Device dislocation [None]
  - Abdominal pain [None]
  - Abnormal weight gain [None]
  - Procedural pain [Recovered/Resolved]

NARRATIVE: CASE EVENT DATE: 2013
